FAERS Safety Report 18715211 (Version 3)
Quarter: 2021Q1

REPORT INFORMATION
  Report Type: Spontaneous
  Country: US (occurrence: US)
  Receive Date: 20210108
  Receipt Date: 20210115
  Transmission Date: 20210419
  Serious: No
  Sender: FDA-Public Use
  Company Number: US-JNJFOC-20201251973

PATIENT
  Sex: Female

DRUGS (2)
  1. WOMENS ROGAINE [Suspect]
     Active Substance: MINOXIDIL
     Indication: ALOPECIA
     Route: 065
  2. VIVISCAL [DL? LACTIC ACID;PANTHENOL;SILICON DIOXIDE] [Concomitant]
     Indication: ALOPECIA
     Route: 065

REACTIONS (1)
  - Alopecia [Unknown]
